FAERS Safety Report 8348105-7 (Version None)
Quarter: 2012Q2

REPORT INFORMATION
  Report Type: 
  Country: None (occurrence: None)
  Receive Date: 20120509
  Receipt Date: 20120504
  Transmission Date: 20120825
  Serious: Yes (Hospitalization)
  Sender: FDA-Public Use
  Company Number: PHHO2012BR006601

PATIENT
  Sex: Female
  Weight: 52.4 kg

DRUGS (4)
  1. CERTICAN [Suspect]
     Indication: RENAL TRANSPLANT
     Dosage: 1.5 MG, BID
     Route: 048
     Dates: start: 20120408
  2. TACROLIMUS [Concomitant]
     Indication: RENAL TRANSPLANT
  3. SIMULECT [Suspect]
     Dosage: 20 MG, QD
     Route: 042
     Dates: start: 20120407
  4. PREDNISONE TAB [Concomitant]
     Indication: RENAL TRANSPLANT

REACTIONS (1)
  - URINARY FISTULA [None]
